FAERS Safety Report 5891774-1 (Version None)
Quarter: 2008Q3

REPORT INFORMATION
  Report Type: 
  Country: None (occurrence: None)
  Receive Date: 20080922
  Receipt Date: 20080910
  Transmission Date: 20090109
  Serious: Yes (Other)
  Sender: FDA-Public Use
  Company Number: LB-ASTRAZENECA-2008SE04293

PATIENT
  Age: 55 Year
  Weight: 64 kg

DRUGS (1)
  1. NOLVADEX [Suspect]
     Route: 048
     Dates: start: 20070401

REACTIONS (2)
  - MYALGIA [None]
  - TENDONITIS [None]
